FAERS Safety Report 8552312-8 (Version None)
Quarter: 2012Q3

REPORT INFORMATION
  Report Type: 
  Country: None (occurrence: None)
  Receive Date: 20120723
  Receipt Date: 20120723
  Transmission Date: 20120928
  Serious: Yes (Life-Threatening, Hospitalization)
  Sender: FDA-Public Use
  Company Number: None

PATIENT
  Age: 82 Year
  Sex: Male
  Weight: 97.9 kg

DRUGS (2)
  1. LINEZOLID [Suspect]
     Indication: INFECTION
     Dosage: 600 MG BID PO
     Route: 048
     Dates: start: 20120514, end: 20120518
  2. SERTRALINE HYDROCHLORIDE [Suspect]
     Indication: DEPRESSION
     Dosage: 50 MG EVERY DAY PO
     Route: 048
     Dates: start: 20120308

REACTIONS (1)
  - SEROTONIN SYNDROME [None]
